FAERS Safety Report 25004526 (Version 1)
Quarter: 2025Q1

REPORT INFORMATION
  Report Type: Report from Study
  Country: PH (occurrence: PH)
  Receive Date: 20250224
  Receipt Date: 20250224
  Transmission Date: 20250408
  Serious: Yes (Death)
  Sender: OTSUKA
  Company Number: PH-MMM-Otsuka-BAW465OL

PATIENT

DRUGS (1)
  1. TOLVAPTAN [Suspect]
     Active Substance: TOLVAPTAN
     Indication: Product used for unknown indication
     Dosage: 1 DF, QD (15 MG 1 CAPSULE A DAY)
     Route: 048
     Dates: start: 202408, end: 20241102

REACTIONS (2)
  - Cardiac failure [Fatal]
  - Asthenia [Fatal]
